FAERS Safety Report 12475014 (Version 1)
Quarter: 2016Q2

REPORT INFORMATION
  Report Type: Spontaneous
  Country: PL (occurrence: PL)
  Receive Date: 20160617
  Receipt Date: 20160617
  Transmission Date: 20160815
  Serious: Yes (Other)
  Sender: FDA-Public Use
  Company Number: PL-SUN PHARMACEUTICAL INDUSTRIES LTD-2016R1-118453

PATIENT
  Age: 36 Year
  Sex: Female

DRUGS (3)
  1. CALCIUM FOLINAT [Suspect]
     Active Substance: LEUCOVORIN CALCIUM
     Indication: SOLID PSEUDOPAPILLARY TUMOUR OF THE PANCREAS
     Route: 065
  2. FLUOROURACIL. [Suspect]
     Active Substance: FLUOROURACIL
     Indication: SOLID PSEUDOPAPILLARY TUMOUR OF THE PANCREAS
     Route: 065
  3. OXALIPLATIN. [Suspect]
     Active Substance: OXALIPLATIN
     Indication: SOLID PSEUDOPAPILLARY TUMOUR OF THE PANCREAS
     Route: 065

REACTIONS (1)
  - Therapeutic response decreased [Unknown]
